FAERS Safety Report 10870994 (Version 1)
Quarter: 2015Q1

REPORT INFORMATION
  Report Type: Spontaneous
  Country: US (occurrence: US)
  Receive Date: 20150226
  Receipt Date: 20150226
  Transmission Date: 20150721
  Serious: No
  Sender: FDA-Public Use
  Company Number: US-MYLANLABS-2014S1003915

PATIENT
  Age: 65 Year
  Sex: Female

DRUGS (20)
  1. PANTOPRAZOLE SODIUM DELAYED-RELEASE TABLETS, USP [Suspect]
     Active Substance: PANTOPRAZOLE SODIUM
     Indication: ABDOMINAL DISCOMFORT
  2. CARISOPRODOL. [Concomitant]
     Active Substance: CARISOPRODOL
     Dosage: 350 MG,HS
  3. RHINOCORT [Concomitant]
     Active Substance: BUDESONIDE
     Dosage: 32 ?G,PRN
     Route: 045
  4. ANTIFUNGALS [Concomitant]
     Active Substance: UNSPECIFIED INGREDIENT
     Indication: LOCALISED INFECTION
     Dosage: UNK
     Route: 061
  5. VENTOLIN HFA [Concomitant]
     Active Substance: ALBUTEROL SULFATE
     Dosage: UNK UNK,PRN
  6. LAXATIVE [Concomitant]
     Active Substance: UNSPECIFIED INGREDIENT
     Dosage: UNK
  7. ASPIRIN. [Concomitant]
     Active Substance: ASPIRIN
     Dosage: 81 MG,UNK
  8. ALLERGY SHOTS [Concomitant]
     Active Substance: UNSPECIFIED INGREDIENT
     Dosage: UNK UNK,Q3W
  9. PANTOPRAZOLE SODIUM DELAYED-RELEASE TABLETS, USP [Suspect]
     Active Substance: PANTOPRAZOLE SODIUM
     Indication: GASTRITIS
  10. LIDODERM [Concomitant]
     Active Substance: LIDOCAINE
     Dosage: 5 %,UNK
     Route: 062
  11. ALBUTEROL. [Concomitant]
     Active Substance: ALBUTEROL
     Dosage: UNK
     Route: 055
  12. ANTIFUNGALS FOR TOPICAL USE [Concomitant]
     Indication: NAIL INFECTION
     Dosage: UNK
  13. PANTOPRAZOLE SODIUM DELAYED-RELEASE TABLETS, USP [Suspect]
     Active Substance: PANTOPRAZOLE SODIUM
     Indication: ABDOMINAL PAIN UPPER
  14. PANTOPRAZOLE SODIUM DELAYED-RELEASE TABLETS, USP [Suspect]
     Active Substance: PANTOPRAZOLE SODIUM
     Indication: OFF LABEL USE
  15. ST JOHN^S WORT [Concomitant]
     Active Substance: ST. JOHN^S WORT
     Dosage: 900 MG,QD
  16. NORCO [Concomitant]
     Active Substance: ACETAMINOPHEN\HYDROCODONE BITARTRATE
     Dosage: UNK
  17. PANTOPRAZOLE SODIUM DELAYED-RELEASE TABLETS, USP [Suspect]
     Active Substance: PANTOPRAZOLE SODIUM
     Dosage: 40 MG,ONCE
     Route: 048
     Dates: start: 20140209, end: 20140209
  18. MELOXICAM. [Concomitant]
     Active Substance: MELOXICAM
     Indication: ARTHRITIS
     Dosage: 7.5 MG,QD
  19. CLARITIN [Concomitant]
     Active Substance: LORATADINE
     Dosage: 10 MG,QD
  20. HYOSCYAMINE [Concomitant]
     Active Substance: HYOSCYAMINE
     Dosage: .125 ?G,PRN

REACTIONS (5)
  - Abdominal pain [Not Recovered/Not Resolved]
  - Malaise [Not Recovered/Not Resolved]
  - Myalgia [Not Recovered/Not Resolved]
  - Pain [Not Recovered/Not Resolved]
  - Diarrhoea [Recovered/Resolved]

NARRATIVE: CASE EVENT DATE: 20140209
